FAERS Safety Report 16095329 (Version 2)
Quarter: 2019Q3

REPORT INFORMATION
  Report Type: Other
  Country: CA (occurrence: CA)
  Receive Date: 20190320
  Receipt Date: 20190718
  Transmission Date: 20191004
  Serious: Yes (Other)
  Sender: FDA-Public Use
  Company Number: CA-BECTON DICKINSON-2019BDN00118

PATIENT
  Age: 42 Year
  Sex: Female
  Weight: 81 kg

DRUGS (17)
  1. PREDNISONE. [Concomitant]
     Active Substance: PREDNISONE
  2. REACTINE [Concomitant]
  3. ACTEMRA [Suspect]
     Active Substance: TOCILIZUMAB
  4. ARAVA [Suspect]
     Active Substance: LEFLUNOMIDE
  5. SIMPONI [Suspect]
     Active Substance: GOLIMUMAB
     Route: 058
  6. IBUPROFEN. [Concomitant]
     Active Substance: IBUPROFEN
  7. TYLENOL [Concomitant]
     Active Substance: ACETAMINOPHEN
  8. ZOPICLONE [Concomitant]
     Active Substance: ZOPICLONE
  9. CIMZIA [Suspect]
     Active Substance: CERTOLIZUMAB PEGOL
     Indication: RHEUMATOID ARTHRITIS
     Dosage: 400 MG
     Route: 058
  10. VITAMIN C [Concomitant]
     Active Substance: ASCORBIC ACID
  11. METHOTREXATE. [Suspect]
     Active Substance: METHOTREXATE
  12. ORENCIA [Suspect]
     Active Substance: ABATACEPT
  13. VENTOLIN [Concomitant]
     Active Substance: ALBUTEROL SULFATE
  14. ENBREL [Suspect]
     Active Substance: ETANERCEPT
     Indication: RHEUMATOID ARTHRITIS
     Route: 058
  15. CHLORHEXIDINE [Suspect]
     Active Substance: CHLORHEXIDINE
     Indication: RHEUMATOID ARTHRITIS
     Route: 058
  16. HYDROXYCHLOROQUINE [Concomitant]
     Active Substance: HYDROXYCHLOROQUINE
  17. PANTOPRAZOLE SODIUM ANHYDROUS [Concomitant]
     Active Substance: PANTOPRAZOLE SODIUM ANHYDROUS

REACTIONS (22)
  - Night sweats [Unknown]
  - Abdominal pain upper [Unknown]
  - Muscle spasticity [Unknown]
  - Peripheral swelling [Unknown]
  - Asthenia [Unknown]
  - Diarrhoea [Unknown]
  - Pain [Unknown]
  - Rash [Unknown]
  - Respiratory disorder [Unknown]
  - Urticaria [Unknown]
  - Pruritus generalised [Unknown]
  - Body temperature increased [Unknown]
  - Headache [Unknown]
  - Incorrect route of product administration [Unknown]
  - Back pain [Unknown]
  - Joint swelling [Unknown]
  - Sinusitis [Unknown]
  - Vomiting [Unknown]
  - Insomnia [Unknown]
  - Off label use [Unknown]
  - Lower respiratory tract infection [Unknown]
  - Ear pain [Unknown]
